FAERS Safety Report 17465986 (Version 1)
Quarter: 2020Q1

REPORT INFORMATION
  Report Type: Report from Study
  Country: None (occurrence: US)
  Receive Date: 20200227
  Receipt Date: 20200227
  Transmission Date: 20200409
  Serious: Yes (Hospitalization)
  Sender: FDA-Public Use
  Company Number: US-ABBVIE-19K-163-3158932-00

PATIENT
  Sex: Female

DRUGS (1)
  1. IMBRUVICA [Suspect]
     Active Substance: IBRUTINIB
     Indication: B-CELL SMALL LYMPHOCYTIC LYMPHOMA
     Dosage: 560 MG, QD
     Route: 048
     Dates: start: 20190801

REACTIONS (15)
  - Rash [Not Recovered/Not Resolved]
  - Contusion [Unknown]
  - Nervousness [Unknown]
  - Blood glucose decreased [Unknown]
  - Rash macular [Unknown]
  - Ear infection [Unknown]
  - Face injury [Unknown]
  - Laboratory test abnormal [Recovering/Resolving]
  - Emotional disorder [Unknown]
  - Gait disturbance [Unknown]
  - Hyperhidrosis [Unknown]
  - Fall [Unknown]
  - Dysphonia [Unknown]
  - Rosacea [Not Recovered/Not Resolved]
  - Dysphemia [Unknown]

NARRATIVE: CASE EVENT DATE: 2019
